FAERS Safety Report 7026276-2 (Version None)
Quarter: 2010Q4

REPORT INFORMATION
  Report Type: 
  Country: None (occurrence: None)
  Receive Date: 20101004
  Receipt Date: 20100922
  Transmission Date: 20110411
  Serious: Yes (Other)
  Sender: FDA-Public Use
  Company Number: MX-ELI_LILLY_AND_COMPANY-MX201008005776

PATIENT
  Age: 45 Year
  Sex: Female
  Weight: 84 kg

DRUGS (5)
  1. HUMALOG MIX 75/25 [Suspect]
     Indication: TYPE 2 DIABETES MELLITUS
     Dosage: 35 IU, EACH MORNING
     Route: 058
     Dates: start: 20050101
  2. HUMALOG MIX 75/25 [Suspect]
     Dosage: 18 IU, DAILY (1/D)
     Route: 058
     Dates: start: 20050101
  3. HUMALOG MIX 75/25 [Suspect]
     Dosage: 30 IU, EACH MORNING
     Route: 058
     Dates: start: 20050101
  4. HUMALOG MIX 75/25 [Suspect]
     Dosage: 15 IU, EACH EVENING
     Route: 058
     Dates: start: 20050101
  5. METFORMIN HCL [Concomitant]
     Indication: DIABETES MELLITUS
     Dosage: 850 MG, DAILY (1/D)

REACTIONS (6)
  - BLOOD GLUCOSE INCREASED [None]
  - CATARACT [None]
  - INJECTION SITE HAEMATOMA [None]
  - INJECTION SITE PAIN [None]
  - OVARIAN CANCER [None]
  - VISUAL ACUITY REDUCED [None]
